FAERS Safety Report 4355522-9 (Version None)
Quarter: 2004Q2

REPORT INFORMATION
  Report Type: 
  Country: None (occurrence: None)
  Receive Date: 20040503
  Receipt Date: 20030821
  Transmission Date: 20050107
  Serious: Yes (Other)
  Sender: FDA-Public Use
  Company Number: PHEH2003US06176

PATIENT
  Age: 59 Year
  Sex: Female

DRUGS (4)
  1. LOTREL [Suspect]
     Indication: HYPERTENSION
     Dosage: 1 CAPSULE/QD, ORAL
     Route: 048
     Dates: start: 19980101, end: 20020701
  2. HYDROCHLOROTHIAZIDE [Concomitant]
  3. ASPIRIN [Concomitant]
  4. CALCIUM [Concomitant]

REACTIONS (5)
  - MUSCLE SPASMS [None]
  - OEDEMA [None]
  - PARAESTHESIA [None]
  - PERFORMANCE STATUS DECREASED [None]
  - SWELLING [None]
